FAERS Safety Report 5663561-0 (Version None)
Quarter: 2008Q1

REPORT INFORMATION
  Report Type: 
  Country: None (occurrence: None)
  Receive Date: 20080313
  Receipt Date: 20080220
  Transmission Date: 20080703
  Serious: No
  Sender: FDA-Public Use
  Company Number: US-BOEHRINGER INGELHEIM GMBH, GERMANY-2008-BP-02567BP

PATIENT
  Sex: Female

DRUGS (6)
  1. SPIRIVA [Suspect]
     Indication: CHRONIC OBSTRUCTIVE PULMONARY DISEASE
     Route: 055
     Dates: start: 20080215
  2. TIAZAC [Concomitant]
  3. COREG [Concomitant]
  4. PREMARIN [Concomitant]
  5. NEXIUM [Concomitant]
  6. ZANAFLEX [Concomitant]

REACTIONS (3)
  - DRY MOUTH [None]
  - DRY THROAT [None]
  - DYSPHONIA [None]
